FAERS Safety Report 8645917 (Version 4)
Quarter: 2013Q4

REPORT INFORMATION
  Report Type: Report from Study
  Country: BE (occurrence: BE)
  Receive Date: 20120702
  Receipt Date: 20131023
  Transmission Date: 20140711
  Serious: Yes (Other)
  Sender: FDA-Public Use
  Company Number: BE-CELGENEUS-013-21880-12063541

PATIENT
  Age: 72 Year
  Sex: Male

DRUGS (6)
  1. REVLIMID [Suspect]
     Indication: 5Q MINUS SYNDROME
     Dosage: 10 MILLIGRAM
     Route: 048
     Dates: start: 201007, end: 201106
  2. REVLIMID [Suspect]
     Dosage: 5 MILLIGRAM
     Route: 048
     Dates: start: 201106, end: 201307
  3. THALIDOMIDE [Suspect]
     Indication: 5Q MINUS SYNDROME
     Route: 048
     Dates: start: 200511, end: 201006
  4. VINCRISTINE [Concomitant]
     Indication: ACUTE MYELOID LEUKAEMIA
     Route: 065
     Dates: start: 201307
  5. ASAFLOW [Concomitant]
     Indication: PAIN
     Route: 065
  6. DAUNORUBICIN [Concomitant]
     Indication: ACUTE MYELOID LEUKAEMIA
     Route: 065
     Dates: start: 201307

REACTIONS (1)
  - Lung adenocarcinoma [Unknown]
